FAERS Safety Report 6640297-0 (Version None)
Quarter: 2010Q1

REPORT INFORMATION
  Report Type: 
  Country: None (occurrence: None)
  Receive Date: 20100318
  Receipt Date: 20100311
  Transmission Date: 20100710
  Serious: Yes (Death, Other)
  Sender: FDA-Public Use
  Company Number: BE-MPIJNJ-2010-01637

PATIENT

DRUGS (1)
  1. VELCADE [Suspect]
     Indication: DRUG USE FOR UNKNOWN INDICATION
     Dosage: UNK ML, UNK
     Route: 065

REACTIONS (2)
  - GUILLAIN-BARRE SYNDROME [None]
  - MULTIPLE MYELOMA [None]
